FAERS Safety Report 8562505 (Version 3)
Quarter: 2013Q4

REPORT INFORMATION
  Report Type: Report from Study
  Country: JP (occurrence: JP)
  Receive Date: 20120515
  Receipt Date: 20131217
  Transmission Date: 20140711
  Serious: Yes (Death, Hospitalization, Other)
  Sender: FDA-Public Use
  Company Number: JP-SANOFI-AVENTIS-2012SA033375

PATIENT
  Age: 77 Year
  Sex: Male

DRUGS (2)
  1. TAXOTERE [Suspect]
     Indication: NON-SMALL CELL LUNG CANCER
     Route: 041
     Dates: start: 20120215
  2. ERLOTINIB [Suspect]
     Indication: NON-SMALL CELL LUNG CANCER
     Route: 048
     Dates: start: 20120216, end: 20120223

REACTIONS (8)
  - Pneumonia aspiration [Fatal]
  - Asphyxia [Fatal]
  - Bronchopulmonary aspergillosis [Unknown]
  - Pneumonia aspiration [Unknown]
  - Bronchial fistula [Unknown]
  - Gastric ulcer haemorrhage [Unknown]
  - Neutrophil count decreased [Unknown]
  - Asthenia [Unknown]
